FAERS Safety Report 12985416 (Version 1)
Quarter: 2016Q4

REPORT INFORMATION
  Report Type: Spontaneous
  Country: US (occurrence: US)
  Receive Date: 20161130
  Receipt Date: 20161130
  Transmission Date: 20170207
  Serious: Yes (Other)
  Sender: FDA-Public Use
  Company Number: US-CONCORDIA PHARMACEUTICALS INC.-GSH201611-006049

PATIENT
  Sex: Female

DRUGS (4)
  1. ADVIL [Suspect]
     Active Substance: IBUPROFEN
     Indication: TOOTHACHE
     Route: 048
  2. PARNATE [Suspect]
     Active Substance: TRANYLCYPROMINE SULFATE
     Indication: DEPRESSION
     Route: 048
  3. PARNATE [Suspect]
     Active Substance: TRANYLCYPROMINE SULFATE
     Indication: ANXIETY DISORDER
  4. TYLENOL [Suspect]
     Active Substance: ACETAMINOPHEN
     Indication: TOOTHACHE

REACTIONS (5)
  - Drug interaction [Unknown]
  - Speech disorder [Recovering/Resolving]
  - Facial paralysis [Recovering/Resolving]
  - Drug ineffective [None]
  - Self-medication [None]
